FAERS Safety Report 8037114 (Version 2)
Quarter: 2013Q2

REPORT INFORMATION
  Report Type: Spontaneous
  Country: US (occurrence: None)
  Receive Date: 20110707
  Receipt Date: 20120705
  Transmission Date: 20140414
  Serious: Yes (Hospitalization)
  Sender: FDA-Public Use
  Company Number: US-CYPR-2011-000006

PATIENT
  Age: 58 Year
  Sex: Male
  Weight: 86 kg

DRUGS (10)
  1. CLOPIDOGREL [Suspect]
     Indication: ANTIPLATELET THERAPY
     Dosage: (75 MG QD ORAL)
     Route: 048
     Dates: start: 20101028
  2. ASPIRIN [Suspect]
     Indication: ANTIPLATELET THERAPY
     Dosage: (325 MG QD ORAL) ; (81 MG QD ORAL)
     Dates: start: 20091007, end: 2001
  3. METFORMIN HYDROCHLORIDE [Concomitant]
  4. GLYBURIDE [Concomitant]
  5. NOVOLOG [Concomitant]
  6. LEVEMIR [Concomitant]
  7. METOPROLOL TARTRATE [Concomitant]
  8. AZOR [Concomitant]
  9. NEURONTIN [Concomitant]
  10. CYPHER STENT [Concomitant]

REACTIONS (1)
  - ANGINA UNSTABLE [None]
